FAERS Safety Report 5747644-2 (Version None)
Quarter: 2008Q2

REPORT INFORMATION
  Report Type: 
  Country: None (occurrence: None)
  Receive Date: 20080523
  Receipt Date: 20080514
  Transmission Date: 20081010
  Serious: Yes (Death)
  Sender: FDA-Public Use
  Company Number: JP-JNJFOC-20070400225

PATIENT
  Sex: Female
  Weight: 46 kg

DRUGS (28)
  1. REMICADE [Suspect]
     Route: 042
  2. REMICADE [Suspect]
     Route: 042
  3. REMICADE [Suspect]
     Route: 042
  4. REMICADE [Suspect]
     Route: 042
  5. REMICADE [Suspect]
     Indication: RHEUMATOID ARTHRITIS
     Route: 042
  6. METHOTREXATE [Concomitant]
     Indication: RHEUMATOID ARTHRITIS
     Route: 048
  7. RHEUMATREX [Concomitant]
     Indication: RHEUMATOID ARTHRITIS
     Route: 048
  8. PREDNISOLONE [Concomitant]
     Indication: RHEUMATOID ARTHRITIS
     Route: 048
  9. ISCOTIN [Concomitant]
     Indication: ANTIBIOTIC PROPHYLAXIS
     Route: 048
  10. ANTIHISTAMINE [Concomitant]
     Route: 065
  11. ANTIHISTAMINE [Concomitant]
     Route: 065
  12. ANTIHISTAMINE [Concomitant]
     Route: 065
  13. ANTIHISTAMINE [Concomitant]
     Indication: PROPHYLAXIS
     Route: 065
  14. MOHRUS TAPE [Concomitant]
     Indication: RHEUMATOID ARTHRITIS
  15. KETOPROFEN [Concomitant]
     Indication: RHEUMATOID ARTHRITIS
  16. VENA [Concomitant]
     Route: 048
  17. DIDRONEL [Concomitant]
     Route: 048
  18. MYSLEE [Concomitant]
     Route: 048
  19. FOLIMAN [Concomitant]
     Route: 048
  20. DEPAS [Concomitant]
     Route: 048
  21. KAMAG [Concomitant]
     Route: 048
  22. D-ALFA [Concomitant]
     Route: 048
  23. GASTER D [Concomitant]
     Route: 048
  24. HALCION [Concomitant]
     Route: 048
  25. NORVASC [Concomitant]
     Route: 048
  26. MUCODYNE [Concomitant]
     Route: 048
  27. KLARICID [Concomitant]
     Route: 048
  28. PYRIDOXAL [Concomitant]
     Route: 048

REACTIONS (1)
  - DEATH [None]
